FAERS Safety Report 8208140-6 (Version None)
Quarter: 2012Q1

REPORT INFORMATION
  Report Type: 
  Country: None (occurrence: None)
  Receive Date: 20120314
  Receipt Date: 20120306
  Transmission Date: 20120608
  Serious: Yes (Hospitalization, Other)
  Sender: FDA-Public Use
  Company Number: PHFR2011GB04735

PATIENT
  Sex: Male
  Weight: 120 kg

DRUGS (3)
  1. PAROXETINE [Concomitant]
     Indication: DEPRESSION
     Dosage: 20 MG/DAY
     Route: 048
  2. CLOZARIL [Suspect]
     Indication: SCHIZOPHRENIA
     Dosage: 525 MG/DAY
     Route: 048
     Dates: start: 20060509
  3. VALPROATE SODIUM [Concomitant]
     Indication: AFFECTIVE DISORDER
     Dosage: 1400 MG/DAY
     Route: 048

REACTIONS (5)
  - HYPERTENSION [None]
  - OBESITY [None]
  - HYPERCHOLESTEROLAEMIA [None]
  - BODY MASS INDEX INCREASED [None]
  - TYPE 2 DIABETES MELLITUS [None]
